FAERS Safety Report 7679476-2 (Version None)
Quarter: 2011Q3

REPORT INFORMATION
  Report Type: 
  Country: None (occurrence: None)
  Receive Date: 20110812
  Receipt Date: 20110812
  Transmission Date: 20111222
  Serious: Yes (Other)
  Sender: FDA-Public Use
  Company Number: None

PATIENT
  Age: 81 Year
  Sex: Male
  Weight: 86 kg

DRUGS (2)
  1. LEVOFLOXACIN [Suspect]
     Indication: CHRONIC OBSTRUCTIVE PULMONARY DISEASE
     Dosage: 750 MG
     Route: 048
     Dates: start: 20110808, end: 20110811
  2. LEVOFLOXACIN [Suspect]
     Indication: PNEUMONIA
     Dosage: 750 MG
     Route: 048
     Dates: start: 20110808, end: 20110811

REACTIONS (2)
  - TENDERNESS [None]
  - TENDON PAIN [None]
